FAERS Safety Report 12285698 (Version 1)
Quarter: 2016Q2

REPORT INFORMATION
  Report Type: Spontaneous
  Country: US (occurrence: None)
  Receive Date: 20160419
  Receipt Date: 20160419
  Transmission Date: 20160815
  Serious: Yes (Hospitalization)
  Sender: FDA-Public Use
  Company Number: None

PATIENT
  Age: 6 Year
  Sex: Female
  Weight: 22.6 kg

DRUGS (3)
  1. CYTARABINE. [Suspect]
     Active Substance: CYTARABINE
     Dates: end: 20160329
  2. DAUNORUBICIN [Suspect]
     Active Substance: DAUNORUBICIN
     Dates: end: 20160220
  3. ETOPOSIDE (VP-16) [Suspect]
     Active Substance: ETOPOSIDE
     Dates: end: 20160328

REACTIONS (8)
  - Pulmonary oedema [None]
  - Atelectasis [None]
  - Pleural effusion [None]
  - Pulmonary alveolar haemorrhage [None]
  - Streptococcal bacteraemia [None]
  - Pneumonia [None]
  - Subcutaneous emphysema [None]
  - Respiratory distress [None]

NARRATIVE: CASE EVENT DATE: 20160409
